FAERS Safety Report 18048313 (Version 2)
Quarter: 2021Q4

REPORT INFORMATION
  Report Type: Spontaneous
  Country: CA (occurrence: CA)
  Receive Date: 20200721
  Receipt Date: 20211207
  Transmission Date: 20220303
  Serious: Yes (Other)
  Sender: FDA-Public Use
  Company Number: CA-SAMSUNG BIOEPIS-SB-2020-23006

PATIENT
  Sex: Male

DRUGS (6)
  1. ETANERCEPT [Suspect]
     Active Substance: ETANERCEPT
     Indication: Ankylosing spondylitis
     Dosage: UNKNOWN
     Route: 058
  2. ETANERCEPT [Suspect]
     Active Substance: ETANERCEPT
     Route: 058
  3. LEFLUNOMIDE [Suspect]
     Active Substance: LEFLUNOMIDE
     Indication: Product used for unknown indication
     Dosage: UNKNOWN
     Route: 048
  4. LEFLUNOMIDE [Suspect]
     Active Substance: LEFLUNOMIDE
     Dosage: UNKNOWN
     Route: 048
  5. METHOTREXATE [Suspect]
     Active Substance: METHOTREXATE
     Indication: Product used for unknown indication
     Dosage: UNKNOWN
     Route: 065
  6. HUMIRA [Concomitant]
     Active Substance: ADALIMUMAB
     Indication: Product used for unknown indication
     Dosage: UNKNOWN. SOLUTION SUBCUTANEOUS
     Route: 058

REACTIONS (22)
  - Arthropathy [Unknown]
  - Bone erosion [Unknown]
  - Bone marrow oedema [Unknown]
  - C-reactive protein increased [Unknown]
  - Cartilage injury [Unknown]
  - Exostosis [Unknown]
  - Inflammation [Unknown]
  - Intervertebral disc degeneration [Unknown]
  - Intervertebral disc space narrowing [Unknown]
  - Joint effusion [Unknown]
  - Muscle oedema [Unknown]
  - Osteolysis [Unknown]
  - Rheumatoid arthritis [Unknown]
  - Soft tissue inflammation [Unknown]
  - Spinal osteoarthritis [Unknown]
  - Tendon disorder [Unknown]
  - Loose body in joint [Unknown]
  - Arthritis [Unknown]
  - Osteoarthritis [Unknown]
  - Vertebral osteophyte [Unknown]
  - Treatment failure [Unknown]
  - Therapeutic product effect incomplete [Unknown]
